FAERS Safety Report 13545379 (Version 1)
Quarter: 2017Q2

REPORT INFORMATION
  Report Type: Spontaneous
  Country: US (occurrence: US)
  Receive Date: 20170513
  Receipt Date: 20170513
  Transmission Date: 20170830
  Serious: Yes (Other)
  Sender: FDA-Public Use
  Company Number: None

PATIENT
  Age: 61 Year
  Sex: Female
  Weight: 76.5 kg

DRUGS (9)
  1. RESTASIS [Suspect]
     Active Substance: CYCLOSPORINE
     Indication: SJOGREN^S SYNDROME
     Dosage: ?          QUANTITY:1 DROP(S);?
     Route: 047
     Dates: start: 20170415, end: 20170508
  2. ADDERALL [Concomitant]
     Active Substance: AMPHETAMINE ASPARTATE\AMPHETAMINE SULFATE\DEXTROAMPHETAMINE SACCHARATE\DEXTROAMPHETAMINE SULFATE
  3. ASPIRIN. [Concomitant]
     Active Substance: ASPIRIN
  4. HYDROXYCHLOROQUINE [Concomitant]
     Active Substance: HYDROXYCHLOROQUINE
  5. MELOXICAM. [Concomitant]
     Active Substance: MELOXICAM
  6. OMEPRAZOLE. [Concomitant]
     Active Substance: OMEPRAZOLE
  7. NUTRI VERUS [Concomitant]
  8. XIIDRA [Concomitant]
     Active Substance: LIFITEGRAST
  9. MEGA RED KRILL OIL [Concomitant]

REACTIONS (4)
  - Foreign body sensation in eyes [None]
  - Eye irritation [None]
  - Nasal dryness [None]
  - Epistaxis [None]

NARRATIVE: CASE EVENT DATE: 20170505
